FAERS Safety Report 16116046 (Version 1)
Quarter: 2019Q1

REPORT INFORMATION
  Report Type: Report from Study
  Country: JP (occurrence: JP)
  Receive Date: 20190326
  Receipt Date: 20190326
  Transmission Date: 20190418
  Serious: Yes (Other)
  Sender: FDA-Public Use
  Company Number: JP-VIIV HEALTHCARE LIMITED-A20016226

PATIENT
  Age: 54 Year
  Sex: Male

DRUGS (42)
  1. CRIXIVAN [Suspect]
     Active Substance: INDINAVIR SULFATE
     Dosage: 2.4 G, 1D
     Route: 048
     Dates: start: 19970717, end: 20060312
  2. ZITHROMAC [Suspect]
     Active Substance: AZITHROMYCIN DIHYDRATE
     Dosage: UNK UNK, QD
     Route: 048
     Dates: start: 20170215, end: 20171005
  3. PREZISTANAIVE [Suspect]
     Active Substance: DARUNAVIR
     Dosage: 1 DF, 1D
     Route: 048
     Dates: start: 20170728
  4. KOGENATE [Concomitant]
     Active Substance: ANTIHEMOPHILIC FACTOR, HUMAN RECOMBINANT
     Indication: HAEMOPHILIC ARTHROPATHY
     Dosage: 1000 IU, FOUR TO EIGHT TIMES PER MONTH
     Route: 058
     Dates: end: 20031007
  5. SAMSCA [Concomitant]
     Active Substance: TOLVAPTAN
     Dosage: UNK
     Dates: start: 20170920
  6. ESANBUTOL [Concomitant]
     Active Substance: ETHAMBUTOL HYDROCHLORIDE
     Indication: PROPHYLAXIS
     Dosage: UNK
     Dates: start: 20170215, end: 20171005
  7. ZITHROMAC [Suspect]
     Active Substance: AZITHROMYCIN DIHYDRATE
     Dosage: 600 MG, QD
     Route: 048
     Dates: start: 20110511
  8. CROSS EIGHT M [Concomitant]
     Active Substance: ANTIHEMOPHILIC FACTOR HUMAN
     Dosage: UNK
     Dates: start: 20170215
  9. FUROSEMIDE. [Concomitant]
     Active Substance: FUROSEMIDE
     Dosage: UNK
     Dates: start: 20171213
  10. BLOPRESS [Concomitant]
     Active Substance: CANDESARTAN CILEXETIL
     Dosage: UNK
     Dates: start: 20170215
  11. VESICARE [Concomitant]
     Active Substance: SOLIFENACIN SUCCINATE
     Dosage: UNK
     Dates: start: 20170215
  12. AZUNOL OINTMENT [Concomitant]
     Dosage: UNK
     Dates: start: 20170215
  13. TEPRENONE CAPSULES [Concomitant]
     Indication: PROPHYLAXIS
     Dosage: UNK
     Dates: start: 20170215
  14. MAGNESIUM OXIDE. [Concomitant]
     Active Substance: MAGNESIUM OXIDE
     Dosage: UNK
     Dates: start: 20170215, end: 20171109
  15. ZITHROMAC [Suspect]
     Active Substance: AZITHROMYCIN DIHYDRATE
     Indication: MYCOBACTERIUM AVIUM COMPLEX INFECTION
     Dosage: 600 MG, QD
     Route: 048
     Dates: start: 19970528, end: 20040206
  16. CROSS EIGHT M [Concomitant]
     Active Substance: ANTIHEMOPHILIC FACTOR HUMAN
     Indication: HAEMOPHILIC ARTHROPATHY
     Dosage: 1000 IU, FOUR TO EIGHT TIMES PER MONTH
     Route: 058
     Dates: start: 20031008
  17. REYATAZ [Concomitant]
     Active Substance: ATAZANAVIR SULFATE
     Indication: ACQUIRED IMMUNODEFICIENCY SYNDROME
     Dosage: 300 MG, 1D
     Route: 048
     Dates: start: 20060313, end: 20120905
  18. CALONAL [Concomitant]
     Active Substance: ACETAMINOPHEN
     Dosage: UNK
     Dates: start: 20170215
  19. LYRICA [Concomitant]
     Active Substance: PREGABALIN
     Dosage: UNK
     Dates: start: 20170215
  20. FEIBA [Concomitant]
     Active Substance: ANTI-INHIBITOR COAGULANT COMPLEX
     Dosage: UNK
     Dates: start: 20170215, end: 20170307
  21. ZITHROMAC [Suspect]
     Active Substance: AZITHROMYCIN DIHYDRATE
     Indication: PROPHYLAXIS
     Dosage: 600 MG, QD
     Route: 048
     Dates: start: 20060925, end: 20100428
  22. CYCLOSERINE. [Suspect]
     Active Substance: CYCLOSERINE
     Indication: MYCOBACTERIUM AVIUM COMPLEX INFECTION
     Dosage: 250 MG, BID
     Route: 048
     Dates: start: 19991101, end: 20031114
  23. RETROVIR [Concomitant]
     Active Substance: ZIDOVUDINE
     Indication: ACQUIRED IMMUNODEFICIENCY SYNDROME
     Dosage: 400 MG, 1D
     Route: 048
     Dates: start: 19970502, end: 20060312
  24. PICOSULFATE NA ORAL SOLUTION [Concomitant]
     Dosage: UNK
     Dates: start: 20171227
  25. MIYA-BM [Concomitant]
     Active Substance: CLOSTRIDIUM BUTYRICUM SPORES STRAIN M-55
     Dosage: UNK
     Dates: start: 20170215
  26. PREZCOBIX [Suspect]
     Active Substance: COBICISTAT\DARUNAVIR ETHANOLATE
     Indication: HIV INFECTION
     Dosage: 1 DF, 1D
     Route: 048
     Dates: start: 20170215, end: 20170727
  27. LAMIVUDINE. [Suspect]
     Active Substance: LAMIVUDINE
     Indication: ACQUIRED IMMUNODEFICIENCY SYNDROME
     Dosage: 150 MG, BID
     Route: 048
     Dates: start: 19970502, end: 20060312
  28. EPZICOM [Suspect]
     Active Substance: ABACAVIR SULFATE\LAMIVUDINE
     Indication: HIV INFECTION
     Dosage: 1 DF, 1D
     Route: 048
     Dates: start: 20071001
  29. CRIXIVAN [Suspect]
     Active Substance: INDINAVIR SULFATE
     Indication: ACQUIRED IMMUNODEFICIENCY SYNDROME
     Dosage: 2.4 G, 1D
     Route: 048
     Dates: start: 19970502, end: 19970516
  30. PREZISTANAIVE [Suspect]
     Active Substance: DARUNAVIR
     Indication: HIV INFECTION
     Dosage: 800 MG, 1D
     Route: 048
     Dates: start: 20120906
  31. CILNIDIPINE [Concomitant]
     Active Substance: CILNIDIPINE
     Dosage: UNK
     Dates: start: 20180207
  32. AMLODIPINE BESILATE [Concomitant]
     Active Substance: AMLODIPINE BESYLATE
     Dosage: UNK
     Dates: start: 20170712, end: 20180207
  33. NEXIUM [Concomitant]
     Active Substance: ESOMEPRAZOLE MAGNESIUM
     Indication: PROPHYLAXIS
     Dosage: UNK
     Dates: start: 20170215
  34. PURSENNID [Concomitant]
     Active Substance: SENNOSIDES A AND B
     Dosage: UNK
     Dates: start: 20170215
  35. DIART [Concomitant]
     Active Substance: AZOSEMIDE
     Dosage: UNK
     Dates: start: 20171227
  36. GENTACIN OINTMENT [Concomitant]
     Dosage: UNK
     Dates: start: 20170215
  37. NORVIR [Suspect]
     Active Substance: RITONAVIR
     Indication: HIV INFECTION
     Dosage: 100 MG, 1D
     Route: 048
     Dates: start: 20110609
  38. BAKTAR [Concomitant]
     Active Substance: SULFAMETHOXAZOLE\TRIMETHOPRIM
     Indication: ANTIFUNGAL PROPHYLAXIS
     Dosage: 2 G, BID
     Route: 048
     Dates: start: 19991101, end: 20021212
  39. TRUVADA [Concomitant]
     Active Substance: EMTRICITABINE\TENOFOVIR DISOPROXIL FUMARATE
     Indication: ACQUIRED IMMUNODEFICIENCY SYNDROME
     Dosage: 1 DF, 1D
     Route: 048
     Dates: start: 20060313, end: 20070930
  40. HARNAL [Concomitant]
     Active Substance: TAMSULOSIN HYDROCHLORIDE
     Dosage: UNK
     Dates: start: 20170215
  41. ALFACALCIDOL CAPSULE [Concomitant]
     Dosage: UNK
     Dates: start: 20170215
  42. AMITIZA [Concomitant]
     Active Substance: LUBIPROSTONE
     Dosage: UNK
     Dates: start: 20171117

REACTIONS (18)
  - Cellulitis [Recovering/Resolving]
  - Hypertriglyceridaemia [Not Recovered/Not Resolved]
  - Haemophilic arthropathy [Not Recovered/Not Resolved]
  - Hiatus hernia [Not Recovered/Not Resolved]
  - Hyperuricaemia [Not Recovered/Not Resolved]
  - Hyperkalaemia [Not Recovered/Not Resolved]
  - Anaemia [Not Recovered/Not Resolved]
  - Erectile dysfunction [Not Recovered/Not Resolved]
  - Hypoproteinaemia [Recovering/Resolving]
  - Folliculitis [Not Recovered/Not Resolved]
  - Hepatic function abnormal [Not Recovered/Not Resolved]
  - Hepatitis C [Not Recovered/Not Resolved]
  - Panniculitis [Not Recovered/Not Resolved]
  - Gastric polyps [Not Recovered/Not Resolved]
  - Gastrooesophageal reflux disease [Not Recovered/Not Resolved]
  - Protein urine [Recovering/Resolving]
  - Oesophageal candidiasis [Recovering/Resolving]
  - Tinea pedis [Not Recovered/Not Resolved]

NARRATIVE: CASE EVENT DATE: 20170308
